FAERS Safety Report 6027429-2 (Version None)
Quarter: 2008Q4

REPORT INFORMATION
  Report Type: 
  Country: None (occurrence: None)
  Receive Date: 20081222
  Receipt Date: 20080922
  Transmission Date: 20090506
  Serious: No
  Sender: FDA-Public Use
  Company Number: US-WYE-H06079508

PATIENT
  Age: 72 Year
  Sex: Female

DRUGS (9)
  1. PRISTIQ [Suspect]
     Indication: DEPRESSION
     Dosage: 50 MG 1X PER 1 DAY, ORAL
     Route: 048
     Dates: start: 20080901
  2. XANAX [Concomitant]
  3. LASIX [Concomitant]
  4. DARVOCET-N (DEXTROPROPOXYPHENE/PARACETAMOL) [Concomitant]
  5. ZOCOR [Concomitant]
  6. PLAVIX [Concomitant]
  7. COREG [Concomitant]
  8. REQUIP [Concomitant]
  9. SYNTHROID [Concomitant]

REACTIONS (2)
  - ANXIETY [None]
  - RESTLESSNESS [None]
